FAERS Safety Report 19854384 (Version 1)
Quarter: 2021Q3

REPORT INFORMATION
  Report Type: Report from Study
  Country: GB (occurrence: GB)
  Receive Date: 20210920
  Receipt Date: 20210920
  Transmission Date: 20211014
  Serious: Yes (Other)
  Sender: FDA-Public Use
  Company Number: GB-ACCORD-238825

PATIENT
  Age: 31 Year
  Sex: Male

DRUGS (1)
  1. RAMIPRIL. [Suspect]
     Active Substance: RAMIPRIL
     Indication: IGA NEPHROPATHY
     Dosage: UNK
     Route: 065

REACTIONS (3)
  - Off label use [Unknown]
  - IgA nephropathy [Not Recovered/Not Resolved]
  - Disease progression [Not Recovered/Not Resolved]
